FAERS Safety Report 5740459-0 (Version None)
Quarter: 2008Q2

REPORT INFORMATION
  Report Type: 
  Country: None (occurrence: None)
  Receive Date: 20080516
  Receipt Date: 20080505
  Transmission Date: 20081010
  Serious: Yes (Other)
  Sender: FDA-Public Use
  Company Number: HQWYE214517JUL04

PATIENT
  Sex: Female

DRUGS (3)
  1. PREMPRO [Suspect]
     Indication: HORMONE REPLACEMENT THERAPY
     Dosage: UNSPECIFIED
     Route: 048
     Dates: start: 19930101, end: 20010101
  2. COMBIPATCH [Suspect]
  3. PREMARIN [Suspect]
     Indication: MENOPAUSAL SYMPTOMS
     Dosage: DOSE NOT SPECIFIED
     Route: 067
     Dates: start: 19980701, end: 20020301

REACTIONS (1)
  - BREAST CANCER METASTATIC [None]
